FAERS Safety Report 22608482 (Version 1)
Quarter: 2023Q2

REPORT INFORMATION
  Report Type: Report from Study
  Country: CA (occurrence: CA)
  Receive Date: 20230616
  Receipt Date: 20230616
  Transmission Date: 20230722
  Serious: Yes (Hospitalization)
  Sender: FDA-Public Use
  Company Number: CA-AMGEN-CANSL2023099920

PATIENT
  Age: 83 Year
  Sex: Female

DRUGS (1)
  1. AVSOLA [Suspect]
     Active Substance: INFLIXIMAB-AXXQ
     Indication: Crohn^s disease
     Dosage: 500 MILLIGRAM, Q6WK
     Route: 065
     Dates: start: 20220314

REACTIONS (4)
  - Blood glucose decreased [Unknown]
  - Toxicity to various agents [Unknown]
  - Lung abscess [Unknown]
  - Off label use [Unknown]

NARRATIVE: CASE EVENT DATE: 20220314
